FAERS Safety Report 4612685-5 (Version None)
Quarter: 2005Q1

REPORT INFORMATION
  Report Type: 
  Country: None (occurrence: None)
  Receive Date: 20050318
  Receipt Date: 20050302
  Transmission Date: 20050727
  Serious: Yes (Hospitalization)
  Sender: FDA-Public Use
  Company Number: PHEH2005US02639

PATIENT
  Age: 67 Year
  Sex: Male
  Weight: 136 kg

DRUGS (4)
  1. KLONOPIN [Concomitant]
     Dosage: 1 MG PRN OCCASIONALLY
  2. DIOVAN HCT [Suspect]
     Indication: HYPERTENSION
     Dosage: ONE TABLET, QD
     Route: 048
     Dates: start: 20020101
  3. ASPIRIN [Concomitant]
     Dosage: 2X160 MG
     Dates: start: 19970101
  4. COQ10 [Concomitant]

REACTIONS (6)
  - BLOOD PRESSURE INADEQUATELY CONTROLLED [None]
  - CARDIAC ENZYMES INCREASED [None]
  - CARDIAC STRESS TEST [None]
  - CATHETERISATION CARDIAC ABNORMAL [None]
  - CHEST PAIN [None]
  - FLUID RETENTION [None]
